FAERS Safety Report 9879470 (Version 1)
Quarter: 2014Q1

REPORT INFORMATION
  Report Type: Report from Study
  Country: US (occurrence: US)
  Receive Date: 20140206
  Receipt Date: 20140206
  Transmission Date: 20141002
  Serious: Yes (Hospitalization)
  Sender: FDA-Public Use
  Company Number: US-ACTELION-A-NJ2014-94364

PATIENT
  Age: 27 Year
  Sex: Female

DRUGS (4)
  1. VELETRI [Suspect]
     Indication: COR PULMONALE CHRONIC
     Dosage: 45 NG/KG, PER MIN
     Route: 042
     Dates: start: 20120510
  2. LETAIRIS [Concomitant]
  3. SILDENAFIL [Concomitant]
  4. COUMADIN [Concomitant]

REACTIONS (2)
  - Viral infection [Unknown]
  - Medical device complication [Unknown]
